FAERS Safety Report 9245038 (Version 1)
Quarter: 2013Q1

REPORT INFORMATION
  Report Type: Spontaneous
  Country: US (occurrence: None)
  Receive Date: 20121123
  Receipt Date: 20121123
  Transmission Date: 20140127
  Serious: No
  Sender: FDA-Public Use
  Company Number: 362485

PATIENT
  Age: 52 Year
  Sex: Female

DRUGS (3)
  1. VICTOZA [Suspect]
     Indication: TYPE 1 DIABETES MELLITUS
     Route: 058
  2. LEVEMIR [Suspect]
     Indication: TYPE 1 DIABETES MELLITUS
     Dosage: 18 UNITS QD, SUBCUTAN.-PUMP
     Route: 058
     Dates: start: 20120703
  3. HUMALOG (INSULIN LISPRO) [Concomitant]

REACTIONS (2)
  - Drug dose omission [None]
  - Blood glucose increased [None]
